FAERS Safety Report 4717605-0 (Version None)
Quarter: 2005Q3

REPORT INFORMATION
  Report Type: 
  Country: None (occurrence: None)
  Receive Date: 20050712
  Receipt Date: 20050505
  Transmission Date: 20060218
  Serious: No
  Sender: FDA-Public Use
  Company Number: 2005S1000085

PATIENT
  Age: 57 Year
  Sex: Male

DRUGS (14)
  1. CUBICIN [Suspect]
     Indication: INTRASPINAL ABSCESS
     Dosage: 360 MG;Q24H;IV
     Route: 042
     Dates: start: 20050414
  2. CUBICIN [Suspect]
     Indication: OSTEOMYELITIS
     Dosage: 360 MG;Q24H;IV
     Route: 042
     Dates: start: 20050414
  3. LEVOTHYROXINE [Concomitant]
  4. ASPIRIN [Concomitant]
  5. FENTANYL [Concomitant]
  6. OXYCODONE [Concomitant]
  7. DULOXETINE [Concomitant]
  8. ZOLPIDEM [Concomitant]
  9. MODAFINIL [Concomitant]
  10. SENOKOT [Concomitant]
  11. LANSOPRAZOLE [Concomitant]
  12. SORBITOL [Concomitant]
  13. TAMSULOSIN [Concomitant]
  14. SODIUM CHLORIDE [Concomitant]

REACTIONS (1)
  - HYPERHIDROSIS [None]
